FAERS Safety Report 20373458 (Version 7)
Quarter: 2024Q2

REPORT INFORMATION
  Report Type: Report from Study
  Country: JP (occurrence: JP)
  Receive Date: 20220125
  Receipt Date: 20240409
  Transmission Date: 20240716
  Serious: Yes (Hospitalization, Other)
  Sender: FDA-Public Use
  Company Number: JP-ASTELLAS-2021JP025002

PATIENT
  Age: 80 Year
  Sex: Male
  Weight: 56 kg

DRUGS (23)
  1. ENFORTUMAB VEDOTIN-EJFV [Suspect]
     Active Substance: ENFORTUMAB VEDOTIN-EJFV
     Indication: Ureteric cancer metastatic
     Route: 041
     Dates: start: 20211213, end: 20211220
  2. ZOLPIDEM TARTRATE [Concomitant]
     Active Substance: ZOLPIDEM TARTRATE
     Indication: Insomnia
     Route: 048
     Dates: start: 20211211
  3. LANSOPRAZOLE [Concomitant]
     Active Substance: LANSOPRAZOLE
     Indication: Gastric ulcer
     Route: 048
     Dates: start: 20211211
  4. LANSOPRAZOLE [Concomitant]
     Active Substance: LANSOPRAZOLE
     Indication: Prophylaxis against gastrointestinal ulcer
  5. AMLODIPINE [Concomitant]
     Active Substance: AMLODIPINE BESYLATE
     Indication: Hypertension
     Route: 048
  6. CLOPIDOGREL [Concomitant]
     Active Substance: CLOPIDOGREL BISULFATE
     Indication: Angina pectoris
     Route: 048
     Dates: start: 20211211
  7. FEBUXOSTAT [Concomitant]
     Active Substance: FEBUXOSTAT
     Indication: Hyperuricaemia
     Route: 048
  8. METFORMIN HYDROCHLORIDE\VILDAGLIPTIN [Concomitant]
     Active Substance: METFORMIN HYDROCHLORIDE\VILDAGLIPTIN
     Indication: Diabetes mellitus
     Dosage: 50 MG/500 MG, ONCE DAILY
     Route: 048
     Dates: start: 20211211
  9. JARDIANCE [Concomitant]
     Active Substance: EMPAGLIFLOZIN
     Indication: Diabetes mellitus
     Route: 048
     Dates: start: 20211211
  10. ROSUVASTATIN CALCIUM [Concomitant]
     Active Substance: ROSUVASTATIN CALCIUM
     Indication: Dyslipidaemia
     Route: 048
     Dates: start: 20211211
  11. OPALMON [Concomitant]
     Active Substance: LIMAPROST
     Indication: Spinal stenosis
     Route: 048
  12. SENNOSIDES [Concomitant]
     Active Substance: SENNOSIDES
     Indication: Constipation
     Route: 048
  13. CLARITIN [Concomitant]
     Active Substance: LORATADINE
     Indication: Product used for unknown indication
     Route: 065
     Dates: start: 20211222, end: 20220104
  14. BETAMETHASONE DIPROPIONATE [Concomitant]
     Active Substance: BETAMETHASONE DIPROPIONATE
     Indication: Skin disorder
     Dosage: UNK APPLIED TO THE AFFECTED AREA, TWICE DAILY
     Route: 061
     Dates: start: 20211222, end: 20220104
  15. PREDONINE [Concomitant]
     Active Substance: PREDNISOLONE
     Indication: Skin disorder
     Dosage: 25 MG/DAY, UNKNOWN FREQ.
     Route: 048
     Dates: start: 20211224, end: 20220120
  16. PREDONINE [Concomitant]
     Active Substance: PREDNISOLONE
     Indication: Conjunctival hyperaemia
     Dosage: 20 MG/DAY, UNKNOWN FREQ.
     Route: 048
     Dates: start: 20220121, end: 20220125
  17. PREDONINE [Concomitant]
     Active Substance: PREDNISOLONE
     Dosage: 15 MG/DAY, UNKNOWN FREQ.
     Route: 048
     Dates: start: 20220126, end: 20220130
  18. PREDONINE [Concomitant]
     Active Substance: PREDNISOLONE
     Dosage: 10 MG/DAY, UNKNOWN FREQ.
     Route: 048
     Dates: start: 20220131, end: 20220206
  19. PREDONINE [Concomitant]
     Active Substance: PREDNISOLONE
     Dosage: 5 MG/DAY, UNKNOWN FREQ.
     Route: 048
     Dates: start: 20220207, end: 20220213
  20. PREDONINE [Concomitant]
     Active Substance: PREDNISOLONE
     Dosage: 2.5 MG/DAY, UNKNOWN FREQ.
     Route: 048
     Dates: start: 20220214, end: 20220220
  21. CALONAL [Concomitant]
     Active Substance: ACETAMINOPHEN
     Indication: Pyrexia
     Route: 048
     Dates: start: 20211222, end: 20211224
  22. PIPERACILLIN SODIUM\TAZOBACTAM SODIUM [Concomitant]
     Active Substance: PIPERACILLIN SODIUM\TAZOBACTAM SODIUM
     Indication: Pyrexia
     Route: 042
     Dates: start: 20211224, end: 20211228
  23. Myser [Concomitant]
     Indication: Skin disorder
     Dosage: UNK, APPLIED TO THE AFFECTED AREA, TWICE DAILY
     Route: 061
     Dates: start: 20211228, end: 20220104

REACTIONS (3)
  - Conjunctival hyperaemia [Recovered/Resolved]
  - Skin disorder [Recovering/Resolving]
  - Pyrexia [Recovered/Resolved]

NARRATIVE: CASE EVENT DATE: 20211218
